FAERS Safety Report 23388365 (Version 6)
Quarter: 2024Q2

REPORT INFORMATION
  Report Type: Spontaneous
  Country: US (occurrence: US)
  Receive Date: 20240110
  Receipt Date: 20240523
  Transmission Date: 20240716
  Serious: No
  Sender: FDA-Public Use
  Company Number: US-SA-SAC20240109000856

PATIENT
  Age: 8 Year
  Sex: Male

DRUGS (7)
  1. NEXVIAZYME [Suspect]
     Active Substance: AVALGLUCOSIDASE ALFA-NGPT
     Indication: Glycogen storage disease type II
     Dosage: 1200 MG(40MG/KG), QOW
     Route: 042
     Dates: start: 202307
  2. NEXVIAZYME [Suspect]
     Active Substance: AVALGLUCOSIDASE ALFA-NGPT
     Dosage: 100 MG, QOW
     Route: 042
     Dates: start: 2023
  3. NEXVIAZYME [Suspect]
     Active Substance: AVALGLUCOSIDASE ALFA-NGPT
     Dosage: 1200 MG(40MG/KG), QOW
     Route: 042
     Dates: start: 20240114, end: 202404
  4. DEXTROSE [Concomitant]
     Active Substance: DEXTROSE\DEXTROSE MONOHYDRATE
     Dosage: UNK
  5. HEPARIN [Concomitant]
     Active Substance: HEPARIN SODIUM
     Dosage: UNK
  6. SODIUM CHLORIDE [Concomitant]
     Active Substance: SODIUM CHLORIDE
     Dosage: UNK
  7. DEXTROSE [Concomitant]
     Active Substance: DEXTROSE\DEXTROSE MONOHYDRATE
     Dosage: UNK

REACTIONS (10)
  - Influenza [Unknown]
  - Feeling abnormal [Unknown]
  - Anxiety [Unknown]
  - Decreased appetite [Unknown]
  - Abdominal discomfort [Unknown]
  - Dysstasia [Unknown]
  - Pain in extremity [Unknown]
  - Fatigue [Recovering/Resolving]
  - Asthenia [Unknown]
  - Diarrhoea [Unknown]

NARRATIVE: CASE EVENT DATE: 20240401
